FAERS Safety Report 20040731 (Version 1)
Quarter: 2021Q4

REPORT INFORMATION
  Report Type: Spontaneous
  Country: US (occurrence: None)
  Receive Date: 20211108
  Receipt Date: 20211108
  Transmission Date: 20220303
  Serious: No
  Sender: FDA-Public Use
  Company Number: None

PATIENT
  Age: 41 Year
  Sex: Female
  Weight: 78.75 kg

DRUGS (1)
  1. DEXTROAMPHET SACCHARAT, AMPHET ASPARTATE, DEXTROAMPHET SULFATE AND AMP [Suspect]
     Active Substance: AMPHETAMINE ASPARTATE\AMPHETAMINE SULFATE\DEXTROAMPHETAMINE SACCHARATE\DEXTROAMPHETAMINE SULFATE
     Indication: Attention deficit hyperactivity disorder
     Dosage: FREQUENCY : TWICE A DAY;?
     Route: 048

REACTIONS (11)
  - Product substitution issue [None]
  - Drug ineffective [None]
  - Adverse drug reaction [None]
  - Therapeutic product effect variable [None]
  - Tachyphrenia [None]
  - Disturbance in attention [None]
  - Skin discolouration [None]
  - Irritability [None]
  - Anger [None]
  - Depression [None]
  - Therapeutic response changed [None]

NARRATIVE: CASE EVENT DATE: 20211103
